FAERS Safety Report 7536052-X (Version None)
Quarter: 2011Q2

REPORT INFORMATION
  Report Type: 
  Country: None (occurrence: None)
  Receive Date: 20110602
  Receipt Date: 20110516
  Transmission Date: 20111010
  Serious: Yes (Other)
  Sender: FDA-Public Use
  Company Number: CA-SEPTODONT-201100085

PATIENT
  Age: 22 Year
  Sex: Female

DRUGS (1)
  1. LIDOCAINE HYDROCHLORIDE 2% W/ EPINEPHRINE INJ [Suspect]
     Indication: LOCAL ANAESTHESIA
     Dosage: DENTAL
     Route: 004
     Dates: start: 20110301

REACTIONS (4)
  - LOSS OF CONSCIOUSNESS [None]
  - HYPERHIDROSIS [None]
  - HEART RATE DECREASED [None]
  - HYPOTENSION [None]
